FAERS Safety Report 6247293-6 (Version None)
Quarter: 2009Q2

REPORT INFORMATION
  Report Type: 
  Country: None (occurrence: None)
  Receive Date: 20090626
  Receipt Date: 20090622
  Transmission Date: 20091009
  Serious: Yes (Other)
  Sender: FDA-Public Use
  Company Number: A0793109A

PATIENT
  Sex: Female

DRUGS (21)
  1. ALBUTEROL [Suspect]
     Indication: ASTHMA
     Route: 055
  2. ADVAIR HFA [Suspect]
     Indication: ASTHMA
     Route: 055
     Dates: start: 20000101, end: 20080901
  3. ADVAIR HFA [Suspect]
     Route: 055
     Dates: start: 20080901
  4. SINGULAIR [Concomitant]
  5. ALLEGRA [Concomitant]
  6. MAXAIR [Concomitant]
  7. XOPENEX [Concomitant]
  8. HYDROXYZINE [Concomitant]
  9. ATENOLOL [Concomitant]
  10. VERAPAMIL [Concomitant]
  11. HYDROCHLOROTHIAZIDE [Concomitant]
  12. PREVACID [Concomitant]
  13. ZANTAC [Concomitant]
  14. UNKNOWN [Concomitant]
  15. VITAMIN D [Concomitant]
  16. VITAMIN E [Concomitant]
  17. CALCIUM [Concomitant]
  18. LEVOTHYROXINE SODIUM [Concomitant]
  19. PULMICORT NEBULISED [Concomitant]
  20. PRAVASTATIN [Concomitant]
  21. DIAZEPAM [Concomitant]

REACTIONS (4)
  - ASTHMA [None]
  - CANDIDIASIS [None]
  - LUNG INFECTION [None]
  - PALPITATIONS [None]
